FAERS Safety Report 4565164-8 (Version None)
Quarter: 2005Q1

REPORT INFORMATION
  Report Type: 
  Country: None (occurrence: None)
  Receive Date: 20050127
  Receipt Date: 20050127
  Transmission Date: 20050727
  Serious: Yes (Hospitalization)
  Sender: FDA-Public Use
  Company Number: None

PATIENT
  Age: 64 Year
  Sex: Male
  Weight: 86.2 kg

DRUGS (6)
  1. LISINOPRIL [Suspect]
  2. HYDROCHLOROTHIAZIDE [Concomitant]
  3. IBUPROFEN [Concomitant]
  4. PREDNISONE [Concomitant]
  5. CYCLOBENZAPRINE [Concomitant]
  6. SIMVASTATIN [Concomitant]

REACTIONS (1)
  - ANGIONEUROTIC OEDEMA [None]
